FAERS Safety Report 9227761 (Version 1)
Quarter: 2013Q2

REPORT INFORMATION
  Report Type: Spontaneous
  Country: US (occurrence: US)
  Receive Date: 20130412
  Receipt Date: 20130412
  Transmission Date: 20140414
  Serious: No
  Sender: FDA-Public Use
  Company Number: US-MYLANLABS-2012S1016059

PATIENT
  Age: 67 Year
  Sex: Female

DRUGS (9)
  1. DILTIAZEM HCL EXTENDED RELEASE CAPSULES, USP [Suspect]
     Indication: CARDIAC FAILURE CONGESTIVE
     Route: 048
     Dates: start: 201108
  2. DILTIAZEM HCL EXTENDED RELEASE CAPSULES, USP [Suspect]
     Indication: ATRIAL FIBRILLATION
     Route: 048
     Dates: start: 201108
  3. DILTIAZEM HCL EXTENDED RELEASE CAPSULES, USP [Suspect]
     Indication: MITRAL VALVE INCOMPETENCE
     Route: 048
     Dates: start: 201108
  4. DILTIAZEM HCL EXTENDED RELEASE CAPSULES, USP [Suspect]
     Indication: CARDIAC FAILURE CONGESTIVE
     Route: 048
  5. DILTIAZEM HCL EXTENDED RELEASE CAPSULES, USP [Suspect]
     Indication: ATRIAL FIBRILLATION
     Route: 048
  6. DILTIAZEM HCL EXTENDED RELEASE CAPSULES, USP [Suspect]
     Indication: MITRAL VALVE INCOMPETENCE
     Route: 048
  7. FUROSEMIDE [Concomitant]
     Indication: BLOOD PRESSURE
  8. DIGOXIN [Concomitant]
  9. ASPIRIN [Concomitant]

REACTIONS (13)
  - Abdominal pain upper [Not Recovered/Not Resolved]
  - Chest pain [Not Recovered/Not Resolved]
  - Palpitations [Not Recovered/Not Resolved]
  - Balance disorder [Not Recovered/Not Resolved]
  - Flushing [Not Recovered/Not Resolved]
  - Hyperhidrosis [Not Recovered/Not Resolved]
  - Skin irritation [Not Recovered/Not Resolved]
  - Pruritus [Not Recovered/Not Resolved]
  - Oropharyngeal pain [Not Recovered/Not Resolved]
  - Disturbance in attention [Not Recovered/Not Resolved]
  - Fatigue [Not Recovered/Not Resolved]
  - Mental impairment [Not Recovered/Not Resolved]
  - Feeling abnormal [Not Recovered/Not Resolved]
